FAERS Safety Report 11912614 (Version 2)
Quarter: 2016Q1

REPORT INFORMATION
  Report Type: Report from Study
  Country: FR (occurrence: FR)
  Receive Date: 20160113
  Receipt Date: 20160203
  Transmission Date: 20160526
  Serious: Yes (Hospitalization)
  Sender: FDA-Public Use
  Company Number: FR-ROCHE-1683112

PATIENT
  Age: 76 Year
  Sex: Female
  Weight: 46 kg

DRUGS (27)
  1. BEVACIZUMAB [Suspect]
     Active Substance: BEVACIZUMAB
     Indication: COLORECTAL CANCER METASTATIC
     Dosage: MOST RECENT DOSE OF STUDY DRUG PRIOR TO AE ONSET: 25/NOV/2015
     Route: 042
     Dates: start: 20151015
  2. OXALIPLATIN. [Suspect]
     Active Substance: OXALIPLATIN
     Indication: COLORECTAL CANCER METASTATIC
     Dosage: MOST RECENT DOSE OF STUDY DRUG PRIOR TO AE ONSET: 25/NOV/2015
     Route: 042
     Dates: start: 20151015
  3. SOLU-MEDROL [Concomitant]
     Active Substance: METHYLPREDNISOLONE SODIUM SUCCINATE
     Route: 065
     Dates: start: 20151106, end: 20151115
  4. INEXIUM [Concomitant]
     Active Substance: ESOMEPRAZOLE
     Route: 065
     Dates: start: 20151106, end: 20151106
  5. PRAVASTATIN [Concomitant]
     Active Substance: PRAVASTATIN\PRAVASTATIN SODIUM
  6. SANDOSTATIN [Concomitant]
     Active Substance: OCTREOTIDE ACETATE
     Route: 065
     Dates: start: 20151106, end: 201511
  7. CEFIXIME. [Concomitant]
     Active Substance: CEFIXIME
     Indication: URINARY TRACT INFECTION
     Route: 065
     Dates: start: 20151209, end: 20151218
  8. 5-FLUOROURACIL [Suspect]
     Active Substance: FLUOROURACIL
     Indication: COLORECTAL CANCER METASTATIC
     Dosage: MOST RECENT DOSE OF STUDY DRUG PRIOR TO AE ONSET: 25/NOV/2015?MOST RECENT DOSE OF STUDY DRUG PRIOR T
     Route: 042
     Dates: start: 20151015
  9. MOTILIUM [Concomitant]
     Active Substance: DOMPERIDONE
     Route: 065
     Dates: start: 20151106, end: 20151115
  10. LOPERAMIDE [Concomitant]
     Active Substance: LOPERAMIDE
     Route: 065
     Dates: start: 20151214
  11. CETUXIMAB [Suspect]
     Active Substance: CETUXIMAB
     Indication: COLORECTAL CANCER METASTATIC
     Dosage: LAST DOSE PIOR TO SAE: 18/DEC/2015,   DATE OF MOST RECENT DOSE PRIOR TO SAE: 22/DEC/2015
     Route: 042
     Dates: start: 20151218
  12. MONO TILDIEM [Concomitant]
     Active Substance: DILTIAZEM HYDROCHLORIDE
     Route: 065
  13. ACUPAN [Concomitant]
     Active Substance: NEFOPAM HYDROCHLORIDE
     Route: 065
     Dates: start: 20151106, end: 20151115
  14. INEXIUM [Concomitant]
     Active Substance: ESOMEPRAZOLE
     Route: 065
     Dates: start: 20151215
  15. SPASFON (FRANCE) [Concomitant]
     Active Substance: PHLOROGLUCINOL
     Route: 065
     Dates: start: 20151106
  16. PARACETAMOL [Concomitant]
     Active Substance: ACETAMINOPHEN
     Route: 065
     Dates: start: 20151215
  17. SMECTA [Concomitant]
     Active Substance: MONTMORILLONITE
     Indication: DIARRHOEA
     Route: 065
     Dates: start: 20151016, end: 20151019
  18. VEMURAFENIB [Suspect]
     Active Substance: VEMURAFENIB
     Indication: COLORECTAL CANCER METASTATIC
     Dosage: LAST DOSE PIOR TO SAE: 31/DEC/2015?TEMPORARILY INTERRUPTED: 31/DEC/2015
     Route: 048
     Dates: start: 20151219
  19. 5-FLUOROURACIL [Suspect]
     Active Substance: FLUOROURACIL
     Dosage: LAST DOSE PIOR TO SAE: 18/DEC/2015?TEMPORARILY INTERRUPTED: 31/DEC/2015
     Route: 042
     Dates: start: 20151218, end: 20151231
  20. EUPANTOL [Concomitant]
     Active Substance: PANTOPRAZOLE SODIUM
     Route: 065
     Dates: start: 20151106, end: 20151115
  21. PRIMPERAN [Concomitant]
     Active Substance: METOCLOPRAMIDE HYDROCHLORIDE
     Indication: DEHYDRATION
     Route: 065
     Dates: start: 20151106, end: 20151106
  22. PRIMPERAN [Concomitant]
     Active Substance: METOCLOPRAMIDE HYDROCHLORIDE
     Route: 065
     Dates: start: 20151206
  23. 5-FLUOROURACIL [Suspect]
     Active Substance: FLUOROURACIL
     Dosage: MOST RECENT DOSE OF STUDY DRUG PRIOR TO AE ONSET: 22/DEC/2015
     Route: 042
  24. KARDEGIC [Concomitant]
     Active Substance: ASPIRIN LYSINE
     Route: 065
  25. FOLINIC ACID [Suspect]
     Active Substance: LEUCOVORIN
     Indication: COLORECTAL CANCER METASTATIC
     Dosage: MOST RECENT DOSE OF STUDY DRUG PRIOR TO AE ONSET: 25/NOV/2015?MOST RECENT DOSE OF STUDY DRUG PRIOR T
     Route: 042
     Dates: start: 20151015
  26. DEBRIDAT [Concomitant]
     Active Substance: TRIMEBUTINE MALEATE
     Route: 065
     Dates: start: 20151106
  27. PARACETAMOL [Concomitant]
     Active Substance: ACETAMINOPHEN
     Route: 065
     Dates: start: 20151115, end: 20151130

REACTIONS (2)
  - Dehydration [Recovered/Resolved]
  - Dehydration [Recovered/Resolved]

NARRATIVE: CASE EVENT DATE: 20151206
